FAERS Safety Report 5315816-7 (Version None)
Quarter: 2007Q2

REPORT INFORMATION
  Report Type: 
  Country: None (occurrence: None)
  Receive Date: 20070503
  Receipt Date: 20070426
  Transmission Date: 20071010
  Serious: Yes (Hospitalization)
  Sender: FDA-Public Use
  Company Number: CZ-GLAXOSMITHKLINE-B0468537A

PATIENT
  Age: 39 Year
  Sex: Female

DRUGS (3)
  1. FRAXIPARIN [Suspect]
     Indication: VENOUS THROMBOSIS
     Route: 051
     Dates: start: 20070416, end: 20070416
  2. ARIXTRA [Suspect]
     Indication: THROMBOSIS PROPHYLAXIS
     Route: 065
     Dates: start: 20070418
  3. LETROX [Concomitant]

REACTIONS (6)
  - DYSPNOEA [None]
  - FEELING HOT [None]
  - INJECTION SITE ERYTHEMA [None]
  - INJECTION SITE VESICLES [None]
  - RASH [None]
  - THROAT TIGHTNESS [None]
